FAERS Safety Report 4622677-8 (Version None)
Quarter: 2005Q1

REPORT INFORMATION
  Report Type: 
  Country: None (occurrence: None)
  Receive Date: 20050330
  Receipt Date: 20050215
  Transmission Date: 20050727
  Serious: No
  Sender: FDA-Public Use
  Company Number: US-BRISTOL-MYERS SQUIBB COMPANY-12862991

PATIENT
  Age: 24 Year
  Sex: Female

DRUGS (4)
  1. REYATAZ [Suspect]
  2. NORVIR [Suspect]
  3. TOPAMAX [Suspect]
     Indication: HEADACHE
  4. COMBIVIR [Concomitant]

REACTIONS (3)
  - HYPERBILIRUBINAEMIA [None]
  - PRURITUS [None]
  - RASH MACULO-PAPULAR [None]
